FAERS Safety Report 13498694 (Version 1)
Quarter: 2017Q2

REPORT INFORMATION
  Report Type: Spontaneous
  Country: US (occurrence: US)
  Receive Date: 20170501
  Receipt Date: 20170501
  Transmission Date: 20170830
  Serious: No
  Sender: FDA-Public Use
  Company Number: US-PFIZER INC-2017184223

PATIENT
  Sex: Female

DRUGS (2)
  1. XELJANZ XR [Suspect]
     Active Substance: TOFACITINIB CITRATE
     Dosage: 11 MG, DAILY
     Dates: start: 201703
  2. XELJANZ XR [Suspect]
     Active Substance: TOFACITINIB CITRATE
     Dosage: 11 MG, DAILY
     Dates: start: 201702

REACTIONS (12)
  - Joint swelling [Unknown]
  - Temperature intolerance [Unknown]
  - Bone pain [Unknown]
  - Vitamin D deficiency [Unknown]
  - Viral upper respiratory tract infection [Unknown]
  - Musculoskeletal pain [Unknown]
  - Neck pain [Unknown]
  - Swelling [Unknown]
  - Fatigue [Recovering/Resolving]
  - Arthralgia [Unknown]
  - Musculoskeletal stiffness [Unknown]
  - Peripheral swelling [Unknown]
